FAERS Safety Report 13644842 (Version 1)
Quarter: 2017Q2

REPORT INFORMATION
  Report Type: Spontaneous
  Country: US (occurrence: US)
  Receive Date: 20170612
  Receipt Date: 20170612
  Transmission Date: 20170830
  Serious: No
  Sender: FDA-Public Use
  Company Number: US-ROCHE-1358468

PATIENT
  Sex: Female

DRUGS (7)
  1. XELODA [Suspect]
     Active Substance: CAPECITABINE
     Indication: BREAST CANCER
     Dosage: 2 TAB TWICE A DAY 14 DAYS ON, 7 DAYS OFF
     Route: 048
     Dates: start: 20140215
  2. OXYCODONE [Concomitant]
     Active Substance: OXYCODONE
     Indication: PAIN
     Route: 048
  3. XELODA [Suspect]
     Active Substance: CAPECITABINE
     Indication: HEPATIC CANCER
  4. GABAPENTIN. [Concomitant]
     Active Substance: GABAPENTIN
     Route: 048
  5. ONDANSETRON [Concomitant]
     Active Substance: ONDANSETRON
  6. TYKERB [Concomitant]
     Active Substance: LAPATINIB DITOSYLATE
  7. LEVOTHYROXINE. [Concomitant]
     Active Substance: LEVOTHYROXINE
     Indication: HYPOTHYROIDISM
     Route: 048

REACTIONS (5)
  - Diarrhoea [Unknown]
  - Gastrointestinal pain [Unknown]
  - Pain in extremity [Not Recovered/Not Resolved]
  - Infrequent bowel movements [Unknown]
  - Constipation [Unknown]
